FAERS Safety Report 9773445 (Version 2)
Quarter: 2013Q4

REPORT INFORMATION
  Report Type: Report from Study
  Country: BR (occurrence: BR)
  Receive Date: 20131219
  Receipt Date: 20131219
  Transmission Date: 20140711
  Serious: Yes (Other)
  Sender: FDA-Public Use
  Company Number: PHHY2013BR122207

PATIENT
  Sex: Female

DRUGS (5)
  1. ACLASTA [Suspect]
     Indication: OSTEOPOROSIS
     Dosage: 5 MG, UNK
     Route: 042
     Dates: start: 201308
  2. ARADOIS [Concomitant]
     Dosage: UNK UKN, UNK
     Dates: start: 2003
  3. GLIFAGE [Concomitant]
     Dosage: UNK UKN, UNK
     Dates: start: 2008
  4. BROMAZEPAM [Concomitant]
     Dosage: UNK UKN, UNK
     Dates: start: 2001
  5. FORASEQ [Concomitant]
     Dosage: UNK UKN, UNK
     Dates: start: 201305

REACTIONS (7)
  - Delirium [Recovered/Resolved]
  - Feeling abnormal [Recovered/Resolved]
  - Aphagia [Not Recovered/Not Resolved]
  - Pyrexia [Recovered/Resolved]
  - Pain [Not Recovered/Not Resolved]
  - Asthenia [Not Recovered/Not Resolved]
  - Headache [Not Recovered/Not Resolved]
